FAERS Safety Report 23566238 (Version 1)
Quarter: 2024Q1

REPORT INFORMATION
  Report Type: Spontaneous
  Country: CH (occurrence: CH)
  Receive Date: 20240226
  Receipt Date: 20240226
  Transmission Date: 20240409
  Serious: Yes (Congenital Anomaly)
  Sender: FDA-Public Use
  Company Number: CH-AMGEN-CHESP2024035332

PATIENT

DRUGS (5)
  1. NEUPOGEN [Suspect]
     Active Substance: FILGRASTIM
     Indication: Exposure during pregnancy
     Dosage: 1 DOSAGE FORM
     Route: 064
     Dates: end: 2023
  2. ASPIRIN [Suspect]
     Active Substance: ASPIRIN
     Indication: In vitro fertilisation
     Dosage: 100 MILLIGRAM
     Route: 064
  3. ENOXAPARIN SODIUM [Suspect]
     Active Substance: ENOXAPARIN SODIUM
     Indication: In vitro fertilisation
     Dosage: 40 MILLIGRAM
     Route: 064
     Dates: end: 202305
  4. PREDNISONE [Suspect]
     Active Substance: PREDNISONE
     Indication: In vitro fertilisation
     Dosage: 10 MILLIGRAM
     Route: 064
     Dates: end: 202305
  5. UTROGESTAN [Suspect]
     Active Substance: PROGESTERONE
     Indication: In vitro fertilisation
     Dosage: 400 MILLIGRAM
     Route: 064
     Dates: end: 202305

REACTIONS (2)
  - Polydactyly [Not Recovered/Not Resolved]
  - Exposure during pregnancy [Recovered/Resolved]

NARRATIVE: CASE EVENT DATE: 20230101
